FAERS Safety Report 19214954 (Version 1)
Quarter: 2021Q2

REPORT INFORMATION
  Report Type: Spontaneous
  Country: FR (occurrence: FR)
  Receive Date: 20210505
  Receipt Date: 20210505
  Transmission Date: 20210717
  Serious: Yes (Other)
  Sender: FDA-Public Use
  Company Number: FR-SUN PHARMACEUTICAL INDUSTRIES LTD-2021RR-294047

PATIENT
  Age: 74 Year
  Sex: Male
  Weight: 74 kg

DRUGS (5)
  1. ALPRAZOLAM. [Suspect]
     Active Substance: ALPRAZOLAM
     Indication: BEHAVIOUR DISORDER
     Dosage: 0.25MG 3 TIMES A DAY
     Route: 048
     Dates: end: 20210402
  2. DEPAKINE [Suspect]
     Active Substance: VALPROATE SODIUM
     Indication: BEHAVIOUR DISORDER
     Dosage: 1 DOSAGE FORM, DAILY (1CP IN THE EVENING)
     Route: 048
     Dates: end: 20210402
  3. MIANSERIN [Suspect]
     Active Substance: MIANSERIN
     Indication: BEHAVIOUR DISORDER
     Dosage: 1 DOSAGE FORM, DAILY (1CP IN THE EVENING)
     Route: 048
     Dates: start: 20210322, end: 20210402
  4. COMIRNATY [Suspect]
     Active Substance: TOZINAMERAN
     Indication: PRODUCT USED FOR UNKNOWN INDICATION
     Dosage: 1 DOSAGE FORM, IN TOTAL
     Route: 030
     Dates: start: 20210323, end: 20210323
  5. QUETIAPINE. [Suspect]
     Active Substance: QUETIAPINE
     Indication: BEHAVIOUR DISORDER
     Dosage: 1 DOSAGE FORM, DAILY (1CP IN THE EVENING)
     Route: 048
     Dates: start: 20210322, end: 20210326

REACTIONS (2)
  - Restlessness [Recovering/Resolving]
  - Aggression [Recovering/Resolving]

NARRATIVE: CASE EVENT DATE: 20210326
